FAERS Safety Report 23981154 (Version 2)
Quarter: 2024Q2

REPORT INFORMATION
  Report Type: Report from Study
  Country: US (occurrence: US)
  Receive Date: 20240617
  Receipt Date: 20240621
  Transmission Date: 20240716
  Serious: No
  Sender: FDA-Public Use
  Company Number: US-ALXN-202406USA000514US

PATIENT
  Sex: Female

DRUGS (1)
  1. STRENSIQ [Suspect]
     Active Substance: ASFOTASE ALFA
     Indication: Product used for unknown indication
     Dosage: 0.67 MILLILITER
     Route: 065
     Dates: start: 202403

REACTIONS (8)
  - Product administration error [Unknown]
  - Fatigue [Unknown]
  - Headache [Unknown]
  - Nausea [Unknown]
  - Injection site haemorrhage [Unknown]
  - Injection site bruising [Not Recovered/Not Resolved]
  - Injection site pain [Not Recovered/Not Resolved]
  - Nervousness [Unknown]

NARRATIVE: CASE EVENT DATE: 20240608
